FAERS Safety Report 16263936 (Version 1)
Quarter: 2019Q2

REPORT INFORMATION
  Report Type: Spontaneous
  Country: US (occurrence: US)
  Receive Date: 20190327
  Receipt Date: 20190327
  Transmission Date: 20190711
  Serious: Yes (Hospitalization)
  Sender: FDA-Public Use
  Company Number: None

PATIENT
  Age: 66 Year
  Sex: Male
  Weight: 46.3 kg

DRUGS (6)
  1. LEUCOVORIN CALCIUM. [Suspect]
     Active Substance: LEUCOVORIN CALCIUM
     Dates: end: 20190311
  2. 5-FLUOROURACIL (5-FU) [Suspect]
     Active Substance: FLUOROURACIL
     Dates: end: 20190311
  3. ENOXAPARIN [Concomitant]
     Active Substance: ENOXAPARIN
  4. OXYCODONE-ACETAMINOPHEN [Concomitant]
     Active Substance: ACETAMINOPHEN\OXYCODONE HYDROCHLORIDE
  5. ELOXATIN [Suspect]
     Active Substance: OXALIPLATIN
     Dates: end: 20190311
  6. CELECOXIB. [Concomitant]
     Active Substance: CELECOXIB

REACTIONS (5)
  - Abdominal pain [None]
  - Vomiting [None]
  - Gastrointestinal inflammation [None]
  - Abdominal discomfort [None]
  - Nausea [None]

NARRATIVE: CASE EVENT DATE: 20190316
